FAERS Safety Report 8111242-6 (Version None)
Quarter: 2012Q1

REPORT INFORMATION
  Report Type: 
  Country: None (occurrence: None)
  Receive Date: 20120203
  Receipt Date: 20110711
  Transmission Date: 20120608
  Serious: No
  Sender: FDA-Public Use
  Company Number: US-GLAXOSMITHKLINE-A0936309A

PATIENT
  Age: 21 Year
  Sex: Male

DRUGS (3)
  1. LAMICTAL [Suspect]
     Indication: BIPOLAR DISORDER
     Route: 048
     Dates: start: 20101101, end: 20110612
  2. ADDERALL 5 [Concomitant]
  3. WELLBUTRIN [Concomitant]

REACTIONS (7)
  - DISCOMFORT [None]
  - PRURITUS [None]
  - RASH [None]
  - BURNING SENSATION [None]
  - BLISTER [None]
  - INSOMNIA [None]
  - FEELING ABNORMAL [None]
